FAERS Safety Report 6877339-3 (Version None)
Quarter: 2010Q3

REPORT INFORMATION
  Report Type: 
  Country: None (occurrence: None)
  Receive Date: 20100727
  Receipt Date: 20090917
  Transmission Date: 20110219
  Serious: No
  Sender: FDA-Public Use
  Company Number: US-ABBOTT-09P-163-0598321-00

PATIENT
  Sex: Female

DRUGS (6)
  1. SYNTHROID [Suspect]
     Indication: HYPOTHYROIDISM
     Dates: start: 20090916
  2. CATAPRES [Concomitant]
     Indication: HYPERTENSION
  3. PANCREASE MP16 [Concomitant]
     Indication: PANCREATIC DISORDER
  4. PLAQUENIL [Concomitant]
     Indication: PRODUCT USED FOR UNKNOWN INDICATION
  5. PROTONIX [Concomitant]
     Indication: GASTRIC DISORDER
  6. LOMOTIL [Concomitant]
     Indication: DIARRHOEA

REACTIONS (1)
  - ABDOMINAL PAIN [None]
